FAERS Safety Report 9314191 (Version 1)
Quarter: 2013Q2

REPORT INFORMATION
  Report Type: Spontaneous
  Country: JP (occurrence: JP)
  Receive Date: 20130529
  Receipt Date: 20130529
  Transmission Date: 20140414
  Serious: Yes (Hospitalization)
  Sender: FDA-Public Use
  Company Number: JP-ACCORD-017784

PATIENT
  Age: 42 Year
  Sex: Male

DRUGS (3)
  1. CISPLATIN [Suspect]
     Indication: SEMINOMA
     Dosage: 4 CYCLES, DOSE REDUCED TO 80% AT 3RD CYCLE
  2. ETOPOSIDE [Suspect]
     Indication: SEMINOMA
     Dosage: 4 CYCLES, DOSE REDUCED TO 80% AT 3RD CYCLE
  3. BLEOMYCIN [Suspect]
     Indication: SEMINOMA
     Dosage: 30 MG/BODY, 4 CYCLES, DOSE REDUCED TO 80% AT 3RD CYCLE.

REACTIONS (2)
  - Pancytopenia [Unknown]
  - Thrombosis [Recovered/Resolved]
